FAERS Safety Report 6855369-5 (Version None)
Quarter: 2010Q3

REPORT INFORMATION
  Report Type: 
  Country: None (occurrence: None)
  Receive Date: 20100719
  Receipt Date: 20100712
  Transmission Date: 20110219
  Serious: No
  Sender: FDA-Public Use
  Company Number: US-BIOGENIDEC-2010BI023727

PATIENT
  Sex: Female

DRUGS (1)
  1. TYSABRI [Suspect]
     Indication: MULTIPLE SCLEROSIS
     Route: 042
     Dates: start: 20080903

REACTIONS (14)
  - ANXIETY [None]
  - BACK PAIN [None]
  - CRYING [None]
  - CYSTITIS [None]
  - DEPRESSED MOOD [None]
  - FATIGUE [None]
  - FEELING COLD [None]
  - MEMORY IMPAIRMENT [None]
  - MUSCLE SPASMS [None]
  - MUSCULOSKELETAL STIFFNESS [None]
  - PAIN IN EXTREMITY [None]
  - POOR QUALITY SLEEP [None]
  - RASH [None]
  - TREMOR [None]
